FAERS Safety Report 5035222-2 (Version None)
Quarter: 2006Q2

REPORT INFORMATION
  Report Type: 
  Country: None (occurrence: None)
  Receive Date: 20060522
  Receipt Date: 20060404
  Transmission Date: 20061013
  Serious: Yes (Other)
  Sender: FDA-Public Use
  Company Number: US-JNJFOC-20060401261

PATIENT
  Age: 15 Year
  Sex: Male
  Weight: 86.1834 kg

DRUGS (2)
  1. RISPERDAL CONSTA [Suspect]
     Indication: BIPOLAR DISORDER
     Dosage: 25 MG, 1 IN 2 WEEK, INTRAMUSCULAR
     Route: 030
     Dates: start: 20060301
  2. PROZAC [Concomitant]

REACTIONS (3)
  - DYSPNOEA [None]
  - HYPERTENSION [None]
  - TACHYCARDIA [None]
